FAERS Safety Report 14521729 (Version 14)
Quarter: 2019Q2

REPORT INFORMATION
  Report Type: Spontaneous
  Country: JP (occurrence: JP)
  Receive Date: 20180212
  Receipt Date: 20190524
  Transmission Date: 20190711
  Serious: Yes (Death, Life-Threatening, Hospitalization, Disabling, Other)
  Sender: FDA-Public Use
  Company Number: JP-BRISTOL-MYERS SQUIBB COMPANY-BMS-2018-012874

PATIENT
  Age: 79 Year
  Sex: Male
  Weight: 53 kg

DRUGS (3)
  1. OPDIVO [Suspect]
     Active Substance: NIVOLUMAB
     Indication: RENAL CELL CARCINOMA
     Dosage: 3 MILLIGRAM/KILOGRAM
     Route: 041
     Dates: start: 20170501, end: 20171031
  2. FEBURIC [Concomitant]
     Active Substance: FEBUXOSTAT
     Indication: PRODUCT USED FOR UNKNOWN INDICATION
     Dosage: UNK
     Route: 065
  3. VOTRIENT [Suspect]
     Active Substance: PAZOPANIB HYDROCHLORIDE
     Indication: RENAL CELL CARCINOMA
     Dosage: 600 MILLIGRAM
     Route: 065
     Dates: start: 20171229, end: 20180108

REACTIONS (17)
  - Myocardial infarction [Unknown]
  - Emphysema [Unknown]
  - Bronchopulmonary aspergillosis [Fatal]
  - Thyroiditis [Unknown]
  - Pruritus [Unknown]
  - Hepatic function abnormal [Recovered/Resolved]
  - Tachycardia [Recovered/Resolved]
  - Hyperuricaemia [Not Recovered/Not Resolved]
  - Respiratory failure [Fatal]
  - Bile duct stone [Unknown]
  - Platelet count decreased [Not Recovered/Not Resolved]
  - Metastases to lymph nodes [Unknown]
  - Disseminated intravascular coagulation [Fatal]
  - Hepatitis fulminant [Fatal]
  - Cholangitis [Not Recovered/Not Resolved]
  - Metastases to adrenals [Unknown]
  - Pyrexia [Recovered/Resolved]

NARRATIVE: CASE EVENT DATE: 20170516
